FAERS Safety Report 7622265-5 (Version None)
Quarter: 2011Q3

REPORT INFORMATION
  Report Type: 
  Country: None (occurrence: None)
  Receive Date: 20110720
  Receipt Date: 20110325
  Transmission Date: 20111222
  Serious: Yes (Hospitalization, Disabling)
  Sender: FDA-Public Use
  Company Number: HR-BAYER-2011-026983

PATIENT
  Age: 70 Year
  Sex: Male

DRUGS (16)
  1. OTHER ANALGESICS AND ANTIPYRETICS [Concomitant]
  2. LANITOP [Concomitant]
     Dosage: 1 DF, QD
  3. TPN [Concomitant]
     Dosage: 1 TBL LARIX + 1/4 TBL KALINUR
  4. ALLOPURINOL [Concomitant]
     Dosage: TBL 2X1
  5. ANTIHYPERTENSIVES [Concomitant]
  6. ANTITHROMBOTIC AGENTS [Concomitant]
  7. I.V. SOLUTIONS [Concomitant]
  8. WARFARIN SODIUM [Interacting]
     Indication: ATRIAL FIBRILLATION
     Dosage: UNK
     Route: 048
     Dates: start: 20070101, end: 20100531
  9. CLOPIDOGREL [Interacting]
     Indication: CORONARY ARTERY STENOSIS
     Dosage: UNK
     Route: 048
     Dates: start: 20100402, end: 20100531
  10. ASPIRIN [Suspect]
     Indication: ATRIAL FIBRILLATION
     Dosage: UNK
     Route: 048
     Dates: end: 20100531
  11. ELECTROLYTE [Concomitant]
  12. ISOPTIN [Concomitant]
     Dosage: DAILY DOSE 320 MG
  13. MARIVARIN [Concomitant]
     Dosage: DAILY DOSE .5 DF
  14. ANDOL [Concomitant]
     Dosage: DAILY DOSE 100 MG
  15. ANALGESICS [Concomitant]
  16. TERTENSIF - SLOW RELEASE [Concomitant]
     Dosage: 1 DF, QD

REACTIONS (4)
  - MUSCULAR WEAKNESS [None]
  - HAEMORRHAGIC CEREBRAL INFARCTION [None]
  - URINARY TRACT INFECTION [None]
  - SPEECH DISORDER [None]
